FAERS Safety Report 10944464 (Version 1)
Quarter: 2015Q1

REPORT INFORMATION
  Report Type: Spontaneous
  Country: IT (occurrence: None)
  Receive Date: 20150318
  Receipt Date: 20150318
  Transmission Date: 20150721
  Serious: Yes (Other)
  Sender: FDA-Public Use
  Company Number: SP09186

PATIENT
  Age: 31 Month
  Sex: Female

DRUGS (1)
  1. XIFAXAN [Suspect]
     Active Substance: RIFAXIMIN
     Indication: DIARRHOEA
     Route: 048
     Dates: start: 20150215, end: 20150215

REACTIONS (2)
  - Product use issue [None]
  - Drop attacks [None]

NARRATIVE: CASE EVENT DATE: 20150215
